FAERS Safety Report 13232702 (Version 1)
Quarter: 2017Q1

REPORT INFORMATION
  Report Type: Other
  Country: TW (occurrence: TW)
  Receive Date: 20170214
  Receipt Date: 20170214
  Transmission Date: 20170428
  Serious: Yes (Death, Life-Threatening, Hospitalization, Other)
  Sender: FDA-Public Use
  Company Number: TW-MEDICURE INC.-1063094

PATIENT
  Age: 69 Year
  Sex: Female

DRUGS (7)
  1. TIROFIBAN [Suspect]
     Active Substance: TIROFIBAN
  2. TIGECYCLINE. [Concomitant]
     Active Substance: TIGECYCLINE
  3. HEPARIN [Concomitant]
     Active Substance: HEPARIN SODIUM
  4. ASPIRIN. [Concomitant]
     Active Substance: ASPIRIN
  5. PIPERACILLIN AND TAZOBACTAM [Concomitant]
     Active Substance: PIPERACILLIN SODIUM\TAZOBACTAM SODIUM
  6. TIGECYCLINE. [Concomitant]
     Active Substance: TIGECYCLINE
  7. CLOPIDOGREL [Concomitant]
     Active Substance: CLOPIDOGREL BISULFATE

REACTIONS (11)
  - Multiple organ dysfunction syndrome [Fatal]
  - Pyrexia [Not Recovered/Not Resolved]
  - Staphylococcal bacteraemia [Fatal]
  - Acute myocardial infarction [Recovered/Resolved]
  - Chest pain [Unknown]
  - Vascular pseudoaneurysm [Not Recovered/Not Resolved]
  - Sepsis [Fatal]
  - Intracardiac thrombus [Recovered/Resolved]
  - Vascular stent thrombosis [Recovered/Resolved]
  - Vascular pseudoaneurysm [Recovered/Resolved]
  - Coronary artery disease [Unknown]
